FAERS Safety Report 19620427 (Version 1)
Quarter: 2021Q3

REPORT INFORMATION
  Report Type: Spontaneous
  Country: US (occurrence: US)
  Receive Date: 20210727
  Receipt Date: 20210727
  Transmission Date: 20211014
  Serious: No
  Sender: FDA-Public Use
  Company Number: None

PATIENT
  Sex: Male

DRUGS (2)
  1. BENEFIX [Suspect]
     Active Substance: COAGULATION FACTOR IX RECOMBINANT HUMAN\ISOPROPYL ALCOHOL
     Indication: FACTOR IX DEFICIENCY
     Dosage: ?          OTHER DOSE:SEE EVENT;OTHER ROUTE:IV PORT?
     Dates: start: 20210223
  2. BENEFIX [Suspect]
     Active Substance: COAGULATION FACTOR IX RECOMBINANT HUMAN\ISOPROPYL ALCOHOL
     Indication: FACTOR IX DEFICIENCY
     Dosage: ?          OTHER DOSE:SEE EVENT;OTHER ROUTE:IV PORT?
     Dates: start: 20210223

REACTIONS (3)
  - Treatment noncompliance [None]
  - Haematoma [None]
  - Fall [None]
